FAERS Safety Report 7260793-5 (Version None)
Quarter: 2011Q1

REPORT INFORMATION
  Report Type: 
  Country: None (occurrence: None)
  Receive Date: 20110130
  Receipt Date: 20101122
  Transmission Date: 20110831
  Serious: No
  Sender: FDA-Public Use
  Company Number: US-ABBOTT-10P-163-0687184-00

PATIENT
  Age: 46 Year
  Sex: Male

DRUGS (2)
  1. HOMEMADE BALM - OLIVE OIL, HONEY, AND BEESWAX [Concomitant]
     Indication: PRODUCT USED FOR UNKNOWN INDICATION
     Dosage: EVERY NIGHT APPLIES TO HANDS
  2. HUMIRA [Suspect]
     Indication: PSORIASIS
     Dates: start: 20100907

REACTIONS (2)
  - DRUG INEFFECTIVE [None]
  - PSORIASIS [None]
